FAERS Safety Report 5577394-7 (Version None)
Quarter: 2007Q4

REPORT INFORMATION
  Report Type: 
  Country: None (occurrence: None)
  Receive Date: 20071130
  Receipt Date: 20070921
  Transmission Date: 20080405
  Serious: No
  Sender: FDA-Public Use
  Company Number: 2005PV002108

PATIENT
  Age: 57 Year
  Sex: Male
  Weight: 158.8 kg

DRUGS (5)
  1. EXENATIDE(EXENATIDE) PEN,DISPOSABLE [Suspect]
     Indication: INSULIN-REQUIRING TYPE II DIABETES MELLITUS
     Dosage: 5 UG, 2/D, SUBCUTANEOUS
     Route: 058
     Dates: start: 20050829
  2. AMARYL [Concomitant]
  3. AVANDAMET [Concomitant]
  4. LANTUS [Concomitant]
  5. EXUBERA (INSULIN) [Concomitant]

REACTIONS (5)
  - DYSGEUSIA [None]
  - ERUCTATION [None]
  - GASTROOESOPHAGEAL REFLUX DISEASE [None]
  - VOMITING [None]
  - WEIGHT DECREASED [None]
